FAERS Safety Report 6265821-1 (Version None)
Quarter: 2009Q3

REPORT INFORMATION
  Report Type: 
  Country: None (occurrence: None)
  Receive Date: 20090713
  Receipt Date: 20090630
  Transmission Date: 20100115
  Serious: Yes (Other)
  Sender: FDA-Public Use
  Company Number: B0495147A

PATIENT
  Sex: Male
  Weight: 86 kg

DRUGS (1)
  1. AVANDIA [Suspect]
     Route: 048
     Dates: start: 20060314, end: 20080301

REACTIONS (3)
  - CARDIAC FAILURE [None]
  - DYSPNOEA EXERTIONAL [None]
  - WEIGHT INCREASED [None]
